FAERS Safety Report 6149305-7 (Version None)
Quarter: 2009Q2

REPORT INFORMATION
  Report Type: 
  Country: None (occurrence: None)
  Receive Date: 20090409
  Receipt Date: 20090331
  Transmission Date: 20091009
  Serious: Yes (Other)
  Sender: FDA-Public Use
  Company Number: CA-CELGENEUS-028-20785-09010798

PATIENT
  Sex: Female

DRUGS (2)
  1. THALOMID [Suspect]
     Indication: AMYLOIDOSIS
     Route: 048
  2. DECADRON [Concomitant]
     Indication: AMYLOIDOSIS
     Route: 048

REACTIONS (1)
  - BLOOD HUMAN CHORIONIC GONADOTROPIN INCREASED [None]
